FAERS Safety Report 23088466 (Version 2)
Quarter: 2023Q4

REPORT INFORMATION
  Report Type: Spontaneous
  Country: EG (occurrence: EG)
  Receive Date: 20231020
  Receipt Date: 20231105
  Transmission Date: 20240110
  Serious: Yes (Other)
  Sender: FDA-Public Use
  Company Number: EG-JNJFOC-20231039532

PATIENT
  Age: 39 Year
  Sex: Female

DRUGS (1)
  1. SIMPONI [Suspect]
     Active Substance: GOLIMUMAB
     Indication: Product used for unknown indication
     Route: 058
     Dates: end: 202112

REACTIONS (5)
  - Diarrhoea haemorrhagic [Unknown]
  - Drug ineffective [Unknown]
  - Inflammation [Unknown]
  - Feeling hot [Unknown]
  - Abdominal pain upper [Unknown]
